FAERS Safety Report 10366443 (Version 1)
Quarter: 2014Q3

REPORT INFORMATION
  Report Type: Spontaneous
  Country: CO (occurrence: CO)
  Receive Date: 20140806
  Receipt Date: 20140806
  Transmission Date: 20150326
  Serious: Yes (Death)
  Sender: FDA-Public Use
  Company Number: CO-DSJP-DSU-2014-117318

PATIENT

DRUGS (1)
  1. OLMETEC [Suspect]
     Active Substance: OLMESARTAN MEDOXOMIL
     Indication: OSTEOPOROSIS
     Dosage: 40 MG, UNK
     Route: 048

REACTIONS (2)
  - Aneurysm ruptured [Fatal]
  - Off label use [Unknown]

NARRATIVE: CASE EVENT DATE: 20130817
